FAERS Safety Report 8262109-4 (Version None)
Quarter: 2012Q2

REPORT INFORMATION
  Report Type: 
  Country: None (occurrence: None)
  Receive Date: 20120405
  Receipt Date: 20120331
  Transmission Date: 20120825
  Serious: Yes (Hospitalization, Other)
  Sender: FDA-Public Use
  Company Number: PHHY2012DE028054

PATIENT
  Sex: Male
  Weight: 76 kg

DRUGS (11)
  1. METOPROLOL TARTRATE AND HYDROCHLOROTHIAZIDE [Suspect]
     Indication: HYPERTENSION
     Dosage: 1 DF, (0.5 DF IN MORNING AND 0.5 DF AT NIGHT) PER DAY
     Route: 048
     Dates: start: 20081107
  2. HMG COA REDUCTASE INHIBITORS [Concomitant]
  3. ANTIDEPRESSANTS [Concomitant]
  4. ANGIOTENSIN II ANTAGONISTS [Concomitant]
     Dates: end: 20100809
  5. FLUVASTATIN SODIUM [Suspect]
     Indication: HYPERLIPIDAEMIA
     Dosage: 1 DF, PER DAY
     Route: 048
     Dates: start: 20081107
  6. LORAZEPAM [Suspect]
     Indication: DEPRESSION
     Dosage: 0.5 DF, PER DAY (AT NIGHT)
     Route: 048
     Dates: start: 20081107
  7. PLATELET AGGREGATION INHIBITORS [Concomitant]
  8. IRBESARTAN [Suspect]
     Indication: HYPERTENSION
     Dosage: 0.5 DF, PER DAY (IN THE MORNING)
     Route: 048
     Dates: start: 20081107
  9. RASILEZ [Suspect]
     Indication: HYPERTENSION
     Route: 048
  10. DIURETICS [Concomitant]
  11. VASODILATORS USED IN CARDIAC DISEASES [Concomitant]
     Dates: end: 20100809

REACTIONS (2)
  - GASTROINTESTINAL STROMAL TUMOUR [None]
  - BLOOD PRESSURE DIASTOLIC DECREASED [None]
